FAERS Safety Report 6818663-X (Version None)
Quarter: 2010Q3

REPORT INFORMATION
  Report Type: 
  Country: None (occurrence: None)
  Receive Date: 20100706
  Receipt Date: 20090115
  Transmission Date: 20110219
  Serious: No
  Sender: FDA-Public Use
  Company Number: US-PFIZER INC-2008097851

PATIENT
  Sex: Female
  Weight: 61.224 kg

DRUGS (1)
  1. AZITHROMYCIN [Suspect]
     Indication: RESPIRATORY TRACT INFECTION
     Dosage: 250 MG, 1X/DAY
     Dates: start: 20081009, end: 20081014

REACTIONS (3)
  - CANDIDIASIS [None]
  - GLOSSODYNIA [None]
  - TINNITUS [None]
